FAERS Safety Report 5923798-X (Version None)
Quarter: 2008Q4

REPORT INFORMATION
  Report Type: 
  Country: None (occurrence: None)
  Receive Date: 20081020
  Receipt Date: 20081009
  Transmission Date: 20090506
  Serious: Yes (Other)
  Sender: FDA-Public Use
  Company Number: US-CELGENEUS-163-21880-08061228

PATIENT
  Sex: Male

DRUGS (3)
  1. REVLIMID [Suspect]
     Indication: MYELODYSPLASTIC SYNDROME
     Route: 048
     Dates: start: 20060627
  2. REVLIMID [Suspect]
  3. LANTUS [Concomitant]
     Route: 065

REACTIONS (6)
  - BLINDNESS UNILATERAL [None]
  - ERYTHEMA [None]
  - PLATELET COUNT DECREASED [None]
  - PRURITUS [None]
  - RETINAL HAEMORRHAGE [None]
  - WHITE BLOOD CELL COUNT DECREASED [None]
